FAERS Safety Report 6302040-4 (Version None)
Quarter: 2009Q3

REPORT INFORMATION
  Report Type: 
  Country: None (occurrence: None)
  Receive Date: 20090807
  Receipt Date: 20090728
  Transmission Date: 20100115
  Serious: Yes (Hospitalization)
  Sender: FDA-Public Use
  Company Number: US-WYE-H09982109

PATIENT
  Sex: Female
  Weight: 60.9 kg

DRUGS (2)
  1. DESVENLAFAXINE SUCCINATE MONOHYDRATE [Suspect]
     Indication: MAJOR DEPRESSION
     Route: 048
     Dates: start: 20090522, end: 20090619
  2. TYLENOL (CAPLET) [Concomitant]
     Indication: HEADACHE
     Dosage: UNKNOWN
     Route: 065
     Dates: start: 19870101

REACTIONS (5)
  - CONDITION AGGRAVATED [None]
  - DEPRESSION [None]
  - HALLUCINATION, AUDITORY [None]
  - HOMICIDAL IDEATION [None]
  - SUICIDAL IDEATION [None]
